FAERS Safety Report 20745062 (Version 1)
Quarter: 2022Q2

REPORT INFORMATION
  Report Type: Spontaneous
  Country: US (occurrence: None)
  Receive Date: 20220422
  Receipt Date: 20220422
  Transmission Date: 20220721
  Serious: Yes (Hospitalization)
  Sender: FDA-Public Use
  Company Number: None

PATIENT
  Age: 13 Year
  Sex: Female
  Weight: 39.5 kg

DRUGS (2)
  1. NORDITROPIN [Suspect]
     Active Substance: SOMATROPIN
     Indication: Hypopituitarism
     Dosage: FREQUENCY : DAILY;?
     Route: 058
     Dates: start: 20190906, end: 20220331
  2. NORDITROPIN [Suspect]
     Active Substance: SOMATROPIN
     Indication: Brain neoplasm malignant

REACTIONS (2)
  - Hip fracture [None]
  - Epiphysiolysis [None]

NARRATIVE: CASE EVENT DATE: 20220331
